FAERS Safety Report 6580473-9 (Version None)
Quarter: 2010Q1

REPORT INFORMATION
  Report Type: 
  Country: None (occurrence: None)
  Receive Date: 20100212
  Receipt Date: 20100211
  Transmission Date: 20100710
  Serious: Yes (Life-Threatening, Hospitalization)
  Sender: FDA-Public Use
  Company Number: DE-SANOFI-AVENTIS-2010SA000569

PATIENT
  Age: 75 Year
  Sex: Male
  Weight: 58 kg

DRUGS (8)
  1. OXALIPLATIN [Suspect]
     Indication: COLON CANCER
     Route: 041
     Dates: start: 20091207, end: 20091207
  2. OXALIPLATIN [Suspect]
     Route: 041
     Dates: start: 20090714, end: 20090714
  3. 5-FU [Suspect]
     Indication: COLON CANCER
     Dosage: 700 MG + 1000 MG
     Route: 041
     Dates: start: 20090714, end: 20090714
  4. 5-FU [Suspect]
     Route: 041
     Dates: start: 20091208, end: 20091208
  5. FOLINIC ACID [Suspect]
     Indication: COLON CANCER
     Route: 041
     Dates: start: 20090714, end: 20090714
  6. FOLINIC ACID [Suspect]
     Route: 041
     Dates: start: 20091208, end: 20091208
  7. OMEPRAZOLE [Concomitant]
     Indication: PROPHYLAXIS
     Route: 048
     Dates: start: 20090819
  8. GABAPENTIN [Concomitant]
     Route: 048
     Dates: start: 20091005

REACTIONS (4)
  - ACUTE MYOCARDIAL INFARCTION [None]
  - ANGINA PECTORIS [None]
  - DYSPNOEA [None]
  - PULMONARY CONGESTION [None]
